FAERS Safety Report 7675349-X (Version None)
Quarter: 2011Q3

REPORT INFORMATION
  Report Type: 
  Country: None (occurrence: None)
  Receive Date: 20110810
  Receipt Date: 20110727
  Transmission Date: 20111222
  Serious: No
  Sender: FDA-Public Use
  Company Number: US-B.I. PHARMACEUTICALS,INC./RIDGEFIELD-2011-BP-16783BP

PATIENT
  Sex: Female

DRUGS (9)
  1. SALT [Concomitant]
     Dosage: 720 MG
  2. EVISTA [Concomitant]
     Dosage: 60 MG
  3. CLONAZEPAM [Concomitant]
  4. MULTI-VITAMIN [Concomitant]
  5. VITAMIN B-12 [Concomitant]
  6. MIRTAZOPINE [Concomitant]
  7. PRADAXA [Suspect]
     Indication: ATRIAL FIBRILLATION
     Dosage: 300 MG
     Route: 048
     Dates: start: 20110621, end: 20110708
  8. METOPROLOL TARTRATE [Concomitant]
     Dosage: 5 MG
  9. CALCIUM W/ D [Concomitant]
     Dosage: 1200 NR

REACTIONS (3)
  - FATIGUE [None]
  - DYSPEPSIA [None]
  - ABDOMINAL DISTENSION [None]
